FAERS Safety Report 7225912-5 (Version None)
Quarter: 2011Q1

REPORT INFORMATION
  Report Type: 
  Country: None (occurrence: None)
  Receive Date: 20110113
  Receipt Date: 20110103
  Transmission Date: 20110831
  Serious: Yes (Hospitalization)
  Sender: FDA-Public Use
  Company Number: FR-PFIZER INC-2011007588

PATIENT
  Age: 77 Year
  Sex: Female

DRUGS (10)
  1. PREVISCAN [Interacting]
     Dosage: 20 MG, AS NEEDED
     Route: 048
     Dates: start: 20100821
  2. DIFFU K [Concomitant]
     Dosage: 1 CAPSULE BID
  3. ESOMEPRAZOLE [Concomitant]
     Dosage: 20 MG, DAILY
     Dates: start: 20100820
  4. LASIX [Concomitant]
     Dosage: 20 MG, 2X/DAY
     Dates: start: 20100806
  5. LOVENOX [Interacting]
     Dosage: 0.7 MG, 2X/DAY
     Route: 058
     Dates: start: 20100802, end: 20100827
  6. PLAVIX [Interacting]
     Dosage: 75 MG, DAILY
     Route: 048
  7. TANAKAN [Concomitant]
     Dosage: 40 MG, 3X/DAY
  8. CORDARONE [Suspect]
     Dosage: 200 MG, DAILY
     Route: 048
     Dates: start: 20100821
  9. OMEPRAZOLE [Concomitant]
     Dosage: 20 MG, DAILY
     Dates: end: 20100820
  10. DISCOTRINE [Concomitant]
     Dosage: 10MG/24H

REACTIONS (2)
  - MUSCLE HAEMORRHAGE [None]
  - DRUG INTERACTION [None]
